FAERS Safety Report 24927446 (Version 1)
Quarter: 2025Q1

REPORT INFORMATION
  Report Type: Spontaneous
  Country: ES (occurrence: ES)
  Receive Date: 20250205
  Receipt Date: 20250205
  Transmission Date: 20250409
  Serious: Yes (Hospitalization, Other)
  Sender: CHEPLAPHARM
  Company Number: None

PATIENT
  Age: 38 Year
  Sex: Female
  Weight: 78.4 kg

DRUGS (23)
  1. OLANZAPINE [Suspect]
     Active Substance: OLANZAPINE
     Indication: Suicide attempt
     Route: 048
     Dates: start: 20241104, end: 20241104
  2. OLANZAPINE [Suspect]
     Active Substance: OLANZAPINE
     Indication: Suicide attempt
     Dosage: DAILY DOSE: 5 MILLIGRAM
     Route: 048
     Dates: start: 20241104
  3. BUPROPION HYDROCHLORIDE [Suspect]
     Active Substance: BUPROPION HYDROCHLORIDE
     Indication: Suicide attempt
     Route: 048
     Dates: start: 20241104, end: 20241104
  4. BUPROPION HYDROCHLORIDE [Suspect]
     Active Substance: BUPROPION HYDROCHLORIDE
     Indication: Suicide attempt
     Dosage: DAILY DOSE: 300 MILLIGRAM
     Route: 048
     Dates: start: 20241104
  5. PRISTIQ EXTENDED-RELEASE [Suspect]
     Active Substance: DESVENLAFAXINE SUCCINATE
     Indication: Suicide attempt
     Route: 048
     Dates: start: 20241104, end: 20241104
  6. PRISTIQ EXTENDED-RELEASE [Suspect]
     Active Substance: DESVENLAFAXINE SUCCINATE
     Indication: Suicide attempt
     Route: 048
     Dates: start: 20241104
  7. SIMVASTATIN [Suspect]
     Active Substance: SIMVASTATIN
     Indication: Suicide attempt
     Route: 048
     Dates: start: 20241104, end: 20241104
  8. SIMVASTATIN [Suspect]
     Active Substance: SIMVASTATIN
     Indication: Suicide attempt
     Dosage: 0-0-1?DAILY DOSE: 20 MILLIGRAM
     Route: 048
     Dates: start: 20241104
  9. MIRTAZAPINE [Suspect]
     Active Substance: MIRTAZAPINE
     Indication: Suicide attempt
     Route: 048
     Dates: start: 20241104, end: 20241104
  10. MIRTAZAPINE [Suspect]
     Active Substance: MIRTAZAPINE
     Indication: Suicide attempt
     Dosage: 0-0-0-1?DAILY DOSE: 30 MILLIGRAM
     Route: 048
     Dates: start: 20241104
  11. LYRICA [Suspect]
     Active Substance: PREGABALIN
     Indication: Suicide attempt
     Route: 048
     Dates: start: 20241104, end: 20241104
  12. LYRICA [Suspect]
     Active Substance: PREGABALIN
     Indication: Suicide attempt
     Dosage: DAILY DOSE: 25 MILLIGRAM
     Route: 048
     Dates: start: 20241104
  13. LORMETAZEPAM [Suspect]
     Active Substance: LORMETAZEPAM
     Indication: Suicide attempt
     Route: 048
     Dates: start: 20241104, end: 20241104
  14. LORMETAZEPAM [Suspect]
     Active Substance: LORMETAZEPAM
     Indication: Suicide attempt
     Dosage: IF INSOMNIA?DAILY DOSE: 2 MILLIGRAM
     Route: 048
     Dates: start: 20241104
  15. CLORAZEPATE DIPOTASSIUM [Suspect]
     Active Substance: CLORAZEPATE DIPOTASSIUM
     Indication: Suicide attempt
     Route: 048
     Dates: start: 20241104, end: 20241104
  16. CLORAZEPATE DIPOTASSIUM [Suspect]
     Active Substance: CLORAZEPATE DIPOTASSIUM
     Indication: Suicide attempt
     Dosage: 0-0-0-1?DAILY DOSE: 10 MILLIGRAM
     Route: 048
     Dates: start: 20241104
  17. PREDNISONE [Concomitant]
     Active Substance: PREDNISONE
     Dates: start: 20241104
  18. OMEPRAZOLE [Concomitant]
     Active Substance: OMEPRAZOLE
     Dosage: 1-0-0?DAILY DOSE: 20 MILLIGRAM
     Dates: start: 20241104
  19. MOVICOL [Concomitant]
     Active Substance: POLYETHYLENE GLYCOL 3350\POTASSIUM CHLORIDE\SODIUM BICARBONATE\SODIUM CHLORIDE
  20. ABILIFY [Concomitant]
     Active Substance: ARIPIPRAZOLE
     Route: 030
     Dates: start: 20241104
  21. DEXKETOPROFEN TROMETAMOL [Concomitant]
     Active Substance: DEXKETOPROFEN TROMETAMOL
     Dates: start: 20241104
  22. METHIMAZOLE [Concomitant]
     Active Substance: METHIMAZOLE
     Dates: start: 20241104
  23. ZOMIG [Concomitant]
     Active Substance: ZOLMITRIPTAN
     Dates: start: 20241104

REACTIONS (3)
  - Depressed level of consciousness [Recovered/Resolved]
  - Suicidal ideation [Unknown]
  - Intentional overdose [Unknown]

NARRATIVE: CASE EVENT DATE: 20241104
